FAERS Safety Report 5090657-7 (Version None)
Quarter: 2006Q3

REPORT INFORMATION
  Report Type: 
  Country: None (occurrence: None)
  Receive Date: 20060823
  Receipt Date: 20060812
  Transmission Date: 20061208
  Serious: Yes (Other)
  Sender: FDA-Public Use
  Company Number: 2006098248

PATIENT
  Age: 53 Year
  Sex: Female
  Weight: 56.6996 kg

DRUGS (4)
  1. BENADRYL [Suspect]
     Indication: PRURITUS
     Dosage: 1 TABLET ONCE, ORAL
     Route: 048
     Dates: start: 20060811, end: 20060811
  2. METHYLPHENOBARBITAL (METHYLPHENOBARBITAL) [Concomitant]
  3. PHENYTOIN SODIUM [Concomitant]
  4. LEVOTHYROXINE SODIUM [Concomitant]

REACTIONS (2)
  - EPISTAXIS [None]
  - HAEMATOCHEZIA [None]
